FAERS Safety Report 13779571 (Version 3)
Quarter: 2017Q3

REPORT INFORMATION
  Report Type: Report from Study
  Country: US (occurrence: US)
  Receive Date: 20170721
  Receipt Date: 20170927
  Transmission Date: 20171127
  Serious: Yes (Hospitalization, Other)
  Sender: FDA-Public Use
  Company Number: US-ACTELION-A-US2017-155688

PATIENT
  Age: 83 Year
  Sex: Female
  Weight: 92.63 kg

DRUGS (3)
  1. ADEMPAS [Concomitant]
     Active Substance: RIOCIGUAT
  2. WARFARIN [Concomitant]
     Active Substance: WARFARIN
  3. OPSUMIT [Suspect]
     Active Substance: MACITENTAN
     Indication: PULMONARY ARTERIAL HYPERTENSION
     Dosage: 10 MG, QD
     Route: 048

REACTIONS (6)
  - Unevaluable event [Unknown]
  - Cough [Unknown]
  - Heart rate irregular [Unknown]
  - Dizziness [Unknown]
  - Lung carcinoma cell type unspecified stage IV [Unknown]
  - Hypokalaemic syndrome [Unknown]
